FAERS Safety Report 7672229-0 (Version None)
Quarter: 2011Q3

REPORT INFORMATION
  Report Type: 
  Country: None (occurrence: None)
  Receive Date: 20110809
  Receipt Date: 20110727
  Transmission Date: 20111222
  Serious: Yes (Other)
  Sender: FDA-Public Use
  Company Number: PHHY2011JP69234

PATIENT
  Age: 9 Year
  Sex: Female

DRUGS (1)
  1. OXCARBAZEPINE [Suspect]
     Indication: PARTIAL SEIZURES
     Dosage: UNK UKN, UNK
     Route: 048

REACTIONS (4)
  - PSEUDOBULBAR PALSY [None]
  - CONVULSION [None]
  - PETIT MAL EPILEPSY [None]
  - AGGRESSION [None]
